FAERS Safety Report 6037846-2 (Version None)
Quarter: 2009Q1

REPORT INFORMATION
  Report Type: 
  Country: None (occurrence: None)
  Receive Date: 20090114
  Receipt Date: 20090114
  Transmission Date: 20090719
  Serious: Yes (Hospitalization)
  Sender: FDA-Public Use
  Company Number: None

PATIENT
  Sex: Female
  Weight: 65.7716 kg

DRUGS (1)
  1. ISORBID 60 MG ETHEX [Suspect]
     Indication: ANGINA PECTORIS
     Dosage: 60 MG 1 A DAY

REACTIONS (2)
  - CHEST PAIN [None]
  - PRODUCT QUALITY ISSUE [None]
